FAERS Safety Report 7701923-8 (Version None)
Quarter: 2011Q3

REPORT INFORMATION
  Report Type: 
  Country: None (occurrence: None)
  Receive Date: 20110822
  Receipt Date: 20110817
  Transmission Date: 20111222
  Serious: Yes (Other)
  Sender: FDA-Public Use
  Company Number: CH-PFIZER INC-2011189069

PATIENT
  Age: 63 Year
  Sex: Male
  Weight: 82 kg

DRUGS (7)
  1. ALCOHOL [Suspect]
     Dosage: 1.5 L, 1X/DAY
     Route: 048
     Dates: start: 20110331, end: 20110331
  2. REMERON [Concomitant]
     Dosage: 30 MG, 1X/DAY
     Route: 048
  3. EFFEXOR [Concomitant]
     Dosage: 15 MG, 1X/DAY
     Route: 048
  4. ATORVASTATIN CALCIUM [Suspect]
     Indication: HYPERCHOLESTEROLAEMIA
     Dosage: 20 MG, 1X/DAY
     Route: 048
     Dates: start: 20110201
  5. METOPROLOL SUCCINATE [Concomitant]
     Dosage: 50 MG, 1X/DAY
     Route: 048
     Dates: start: 20090101
  6. CANDESARTAN CILEXETIL [Concomitant]
     Dosage: 8 MG, 1X/DAY
     Route: 048
     Dates: start: 20090101
  7. NEXIUM [Concomitant]
     Dosage: 20 MG, 1X/DAY
     Route: 048

REACTIONS (6)
  - DIZZINESS [None]
  - ASTHENIA [None]
  - CARDIOVASCULAR DISORDER [None]
  - ALCOHOL INTOLERANCE [None]
  - HEADACHE [None]
  - NAUSEA [None]
